FAERS Safety Report 7282158-2 (Version None)
Quarter: 2011Q1

REPORT INFORMATION
  Report Type: 
  Country: None (occurrence: None)
  Receive Date: 20110208
  Receipt Date: 20110201
  Transmission Date: 20110831
  Serious: Yes (Hospitalization)
  Sender: FDA-Public Use
  Company Number: DE-BRISTOL-MYERS SQUIBB COMPANY-15523749

PATIENT
  Age: 76 Year
  Sex: Female

DRUGS (2)
  1. ABATACEPT [Suspect]
     Dosage: T0:05MAR08; T1:10JUN08; T2:17SEP08; T3:11MAR09; T4:09SEP09; T5:18MAY10; T6:09SEP10.
     Dates: start: 20080301
  2. LEFLUNOMIDE [Suspect]
     Dosage: FORM:LEFLUNOMIDE20 T0:05MAR08;T1:10JUN08;T2:17SEP08;T3:11MAR09;T4:09SEP09;T5:18MAY10;T6:09SEP10.

REACTIONS (1)
  - SEPSIS [None]
